FAERS Safety Report 20877569 (Version 1)
Quarter: 2022Q2

REPORT INFORMATION
  Report Type: Spontaneous
  Country: US (occurrence: US)
  Receive Date: 20220526
  Receipt Date: 20220526
  Transmission Date: 20220720
  Serious: No
  Sender: FDA-Public Use
  Company Number: US-BRISTOL-MYERS SQUIBB COMPANY-2022-033209

PATIENT
  Age: 81 Year
  Sex: Female
  Weight: 99 kg

DRUGS (1)
  1. REVLIMID [Suspect]
     Active Substance: LENALIDOMIDE
     Indication: Plasma cell myeloma
     Dosage: 10 MG, 21D ON 7D OFF
     Route: 048
     Dates: start: 20210920

REACTIONS (1)
  - Muscle spasms [Not Recovered/Not Resolved]
